FAERS Safety Report 6905700-7 (Version None)
Quarter: 2010Q3

REPORT INFORMATION
  Report Type: 
  Country: None (occurrence: None)
  Receive Date: 20100804
  Receipt Date: 20100729
  Transmission Date: 20110219
  Serious: Yes (Hospitalization)
  Sender: FDA-Public Use
  Company Number: FR-BRISTOL-MYERS SQUIBB COMPANY-15219793

PATIENT
  Age: 45 Year
  Sex: Male

DRUGS (3)
  1. REYATAZ [Suspect]
     Indication: HIV INFECTION
     Dosage: 1 DF - 1 CAPS
     Route: 048
     Dates: start: 20050816
  2. NORVIR [Suspect]
     Indication: HIV INFECTION
     Dosage: NORVIR (RITONAVIR) 100 MG ;1 DF - 1 CAPS;
     Route: 048
     Dates: start: 20050816
  3. ABACAVIR SULFATE AND LAMIVUDINE [Suspect]
     Indication: HIV INFECTION
     Dosage: KIVEXA (ABACAVIR, LAMIVUDINE) 600 MG/300 MG;1 DF - 1 TABS
     Route: 048
     Dates: start: 20070917

REACTIONS (1)
  - RENAL COLIC [None]
